FAERS Safety Report 6358570-2 (Version None)
Quarter: 2009Q3

REPORT INFORMATION
  Report Type: 
  Country: None (occurrence: None)
  Receive Date: 20090914
  Receipt Date: 20090901
  Transmission Date: 20100115
  Serious: Yes (Other)
  Sender: FDA-Public Use
  Company Number: DSA_41574_2009

PATIENT
  Sex: Female

DRUGS (1)
  1. CARDIZEM LA [Suspect]
     Indication: ATRIAL FIBRILLATION
     Dosage: DF

REACTIONS (3)
  - ATRIAL FIBRILLATION [None]
  - CONDITION AGGRAVATED [None]
  - PRODUCT SUBSTITUTION ISSUE [None]
